FAERS Safety Report 12584588 (Version 8)
Quarter: 2016Q4

REPORT INFORMATION
  Report Type: Report from Study
  Country: JP (occurrence: JP)
  Receive Date: 20160722
  Receipt Date: 20161222
  Transmission Date: 20170207
  Serious: Yes (Hospitalization, Other)
  Sender: FDA-Public Use
  Company Number: JP-B.I. PHARMACEUTICALS,INC./RIDGEFIELD-2016-BI-46229BI

PATIENT
  Age: 62 Year
  Sex: Female
  Weight: 60 kg

DRUGS (7)
  1. KERATINAMIN KOWA [Concomitant]
     Dosage: STRENGTH-20 PERCENT
     Route: 062
     Dates: start: 20140305
  2. CATALIN-K [Concomitant]
     Indication: CATARACT
     Dosage: 0.005% OPTHALMIC
     Route: 031
     Dates: start: 20160422
  3. KERATINAMIN KOWA [Concomitant]
     Indication: PALMOPLANTAR KERATODERMA
     Dosage: STRENGTH-20 PERCENT
     Route: 062
     Dates: start: 20070320
  4. BI 10773+BI 1356 [Suspect]
     Active Substance: EMPAGLIFLOZIN\LINAGLIPTIN
     Dosage: EMPA 25MG/ LINA 5MG
     Route: 065
     Dates: start: 20160518
  5. BI 10773+BI 1356 [Suspect]
     Active Substance: EMPAGLIFLOZIN\LINAGLIPTIN
     Indication: TYPE 2 DIABETES MELLITUS
     Dosage: EMPA 10MG/ LINA 5MG
     Route: 065
     Dates: start: 20151104, end: 20160517
  6. CATALIN-K [Concomitant]
     Dosage: 0.005% OPHTHALMIC, PROPER QUANTITY
     Route: 031
  7. ATORVASTATIN [Concomitant]
     Active Substance: ATORVASTATIN
     Indication: HYPERCHOLESTEROLAEMIA
     Route: 048
     Dates: start: 201204

REACTIONS (1)
  - Adrenal neoplasm [Not Recovered/Not Resolved]

NARRATIVE: CASE EVENT DATE: 20160802
